FAERS Safety Report 4509549-4 (Version None)
Quarter: 2004Q4

REPORT INFORMATION
  Report Type: 
  Country: None (occurrence: None)
  Receive Date: 20041119
  Receipt Date: 20041103
  Transmission Date: 20050328
  Serious: Yes (Hospitalization, Other)
  Sender: FDA-Public Use
  Company Number: US_0411107897

PATIENT
  Age: 63 Year
  Sex: Female

DRUGS (13)
  1. HUMALOG [Suspect]
     Indication: DIABETES MELLITUS
     Dosage: 90 U DAY
     Dates: start: 20010101
  2. CRESTOR [Concomitant]
  3. DETROL (TOLTERODINE) [Concomitant]
  4. AVANDIA [Concomitant]
  5. METOPROLOL [Concomitant]
  6. PLAVIX [Concomitant]
  7. LOTREL [Concomitant]
  8. DIOVAN HCT [Concomitant]
  9. SPIRONOLACTONE [Concomitant]
  10. METFORMIN [Concomitant]
  11. ASPIRIN [Concomitant]
  12. PREVACID [Concomitant]
  13. CLONIDINE [Concomitant]

REACTIONS (9)
  - BLOOD GLUCOSE INCREASED [None]
  - CHEST PAIN [None]
  - CORONARY ARTERY OCCLUSION [None]
  - DIABETES MELLITUS INADEQUATE CONTROL [None]
  - HYPERTENSION [None]
  - MYOCARDIAL INFARCTION [None]
  - PHARMACEUTICAL PRODUCT COMPLAINT [None]
  - RENAL NEOPLASM [None]
  - VENOUS OCCLUSION [None]
